FAERS Safety Report 14516853 (Version 3)
Quarter: 2018Q2

REPORT INFORMATION
  Report Type: Spontaneous
  Country: BR (occurrence: BR)
  Receive Date: 20180212
  Receipt Date: 20180515
  Transmission Date: 20180711
  Serious: Yes (Hospitalization, Other)
  Sender: FDA-Public Use
  Company Number: BR-ABBVIE-18P-020-2247218-00

PATIENT
  Sex: Male
  Weight: 16 kg

DRUGS (7)
  1. DEPAKOTE [Suspect]
     Active Substance: DIVALPROEX SODIUM
     Route: 048
     Dates: start: 2017, end: 2017
  2. DEPAKOTE [Suspect]
     Active Substance: DIVALPROEX SODIUM
     Indication: EPILEPSY
     Dosage: THE CAPSULE WAS OPENED AND ADMINISTERED WITH PETIT SUISSE
     Route: 048
     Dates: start: 2017, end: 2017
  3. DEPAKENE [Suspect]
     Active Substance: VALPROIC ACID
     Dosage: DAILY DOSE: MORNING/NIGHT
     Route: 048
  4. SABRIL [Concomitant]
     Active Substance: VIGABATRIN
     Indication: EPILEPSY
     Route: 065
     Dates: end: 201707
  5. DEPAKOTE ER [Suspect]
     Active Substance: DIVALPROEX SODIUM
     Indication: PRODUCT USED FOR UNKNOWN INDICATION
     Route: 065
  6. DEPAKOTE ER [Suspect]
     Active Substance: DIVALPROEX SODIUM
     Indication: EPILEPSY
     Dosage: VIA CATHER
     Route: 050
     Dates: start: 201710, end: 20180125
  7. DEPAKENE [Suspect]
     Active Substance: VALPROIC ACID
     Indication: EPILEPSY
     Dosage: DAILY DOSE: MORNING/NIGHT
     Route: 048

REACTIONS (12)
  - Wrong technique in product usage process [Unknown]
  - Seizure [Recovering/Resolving]
  - Malnutrition [Recovered/Resolved]
  - Choking [Recovered/Resolved]
  - Somnolence [Recovered/Resolved]
  - Dehydration [Recovered/Resolved]
  - Off label use [Unknown]
  - Product use issue [Unknown]
  - Dysphagia [Recovering/Resolving]
  - Drug administered to patient of inappropriate age [Unknown]
  - Drug dispensing error [Unknown]
  - Eating disorder [Unknown]
